FAERS Safety Report 22246322 (Version 3)
Quarter: 2023Q2

REPORT INFORMATION
  Report Type: Spontaneous
  Country: US (occurrence: US)
  Receive Date: 20230424
  Receipt Date: 20230614
  Transmission Date: 20230722
  Serious: Yes (Hospitalization, Other)
  Sender: FDA-Public Use
  Company Number: US-BEH-2023157702

PATIENT
  Age: 43 Year
  Sex: Male
  Weight: 156.46 kg

DRUGS (2)
  1. HAEGARDA [Suspect]
     Active Substance: HUMAN C1-ESTERASE INHIBITOR
     Indication: Hereditary angioedema
     Dosage: 9000 INTERNATIONAL UNIT, BIW
     Route: 058
     Dates: start: 20220928
  2. HAEGARDA [Suspect]
     Active Substance: HUMAN C1-ESTERASE INHIBITOR
     Indication: Prophylaxis
     Dosage: 9000 INTERNATIONAL UNIT, BIW
     Route: 058
     Dates: start: 20220927

REACTIONS (4)
  - Hereditary angioedema [Recovered/Resolved]
  - Weight increased [Unknown]
  - Hereditary angioedema [Recovered/Resolved]
  - Hereditary angioedema [Recovered/Resolved]

NARRATIVE: CASE EVENT DATE: 20230504
